FAERS Safety Report 26209070 (Version 1)
Quarter: 2025Q4

REPORT INFORMATION
  Report Type: Spontaneous
  Country: US (occurrence: US)
  Receive Date: 20251229
  Receipt Date: 20251229
  Transmission Date: 20260117
  Serious: Yes (Other)
  Sender: STALLERGENES
  Company Number: US-STALCOR-2025-AER-03603

PATIENT
  Age: 4 Year
  Sex: Male
  Weight: 17 kg

DRUGS (4)
  1. PALFORZIA [Suspect]
     Active Substance: PEANUT
     Indication: Food allergy
     Dosage: REACTIVE DOSE 3MG WITH YOGURT ADMINISTERED LAST ON 20-DEC-2025
     Route: 048
     Dates: start: 20251212, end: 20251220
  2. PALFORZIA [Suspect]
     Active Substance: PEANUT
     Dosage: IDE INITIATED
     Route: 048
     Dates: start: 20251211
  3. ALBUTEROL [Concomitant]
     Active Substance: ALBUTEROL
     Indication: Asthma
     Route: 055
  4. EPIPEN [Concomitant]
     Active Substance: EPINEPHRINE
     Indication: Prophylaxis

REACTIONS (7)
  - Gastroenteritis viral [Recovering/Resolving]
  - White blood cell count increased [Unknown]
  - Vomiting [Recovered/Resolved]
  - Abdominal pain [Recovered/Resolved]
  - Decreased appetite [Recovering/Resolving]
  - Therapy cessation [Not Recovered/Not Resolved]
  - Product dose omission issue [Not Recovered/Not Resolved]

NARRATIVE: CASE EVENT DATE: 20251220
